FAERS Safety Report 11903375 (Version 1)
Quarter: 2016Q1

REPORT INFORMATION
  Report Type: Report from Study
  Country: US (occurrence: US)
  Receive Date: 20160108
  Receipt Date: 20160108
  Transmission Date: 20160526
  Serious: No
  Sender: FDA-Public Use
  Company Number: US-ABBVIE-15P-163-1486553-00

PATIENT
  Sex: Male

DRUGS (1)
  1. VIEKIRA PAK [Suspect]
     Active Substance: DASABUVIR\OMBITASVIR\PARITAPREVIR\RITONAVIR
     Indication: MULTIPLE SCLEROSIS
     Dosage: TWO PINK AND ONE BEIGE IN THE MORNING AND ONE BEIGE IN THE EVENING
     Route: 048
     Dates: start: 201509

REACTIONS (1)
  - Abnormal dreams [Unknown]
